FAERS Safety Report 10841335 (Version 2)
Quarter: 2015Q1

REPORT INFORMATION
  Report Type: Spontaneous
  Country: US (occurrence: US)
  Receive Date: 20150220
  Receipt Date: 20150224
  Transmission Date: 20150721
  Serious: Yes (Other)
  Sender: FDA-Public Use
  Company Number: US-AMGEN-USASP2015015654

PATIENT
  Age: 0 Day
  Sex: Female

DRUGS (1)
  1. ENBREL [Suspect]
     Active Substance: ETANERCEPT
     Indication: MATERNAL EXPOSURE BEFORE PREGNANCY
     Dosage: 50 MG, Q2WK
     Route: 064
     Dates: start: 2004

REACTIONS (2)
  - Congenital ovarian anomaly [Recovered/Resolved]
  - Blood glucose decreased [Unknown]

NARRATIVE: CASE EVENT DATE: 20120331
